FAERS Safety Report 11639803 (Version 1)
Quarter: 2015Q4

REPORT INFORMATION
  Report Type: Spontaneous
  Country: US (occurrence: None)
  Receive Date: 20151016
  Receipt Date: 20151016
  Transmission Date: 20160304
  Serious: Yes (Hospitalization)
  Sender: FDA-Public Use
  Company Number: None

PATIENT
  Age: 65 Year
  Sex: Female
  Weight: 92 kg

DRUGS (3)
  1. CARBOPLATIN. [Suspect]
     Active Substance: CARBOPLATIN
     Dates: end: 20150914
  2. METFORMIN HYDROCHLORIDE. [Suspect]
     Active Substance: METFORMIN HYDROCHLORIDE
     Dates: end: 20151011
  3. TAXOL [Suspect]
     Active Substance: PACLITAXEL
     Dates: end: 20150914

REACTIONS (5)
  - Fall [None]
  - Periorbital oedema [None]
  - Central nervous system lesion [None]
  - Skin abrasion [None]
  - Eye contusion [None]

NARRATIVE: CASE EVENT DATE: 20151011
